FAERS Safety Report 25717766 (Version 1)
Quarter: 2025Q3

REPORT INFORMATION
  Report Type: Spontaneous
  Country: EU (occurrence: EU)
  Receive Date: 20250822
  Receipt Date: 20250822
  Transmission Date: 20251021
  Serious: Yes (Other)
  Sender: FRESENIUS KABI
  Company Number: None

PATIENT
  Age: 47 Year
  Sex: Female

DRUGS (8)
  1. TYENNE [Suspect]
     Active Substance: TOCILIZUMAB-AAZG
     Indication: Rheumatoid arthritis
     Dosage: DOSE 1 - 162 MG/WEEK?FOA: SOLUTION FOR INJECTION IN PRE-FILLED PEN
     Route: 058
     Dates: start: 20250205, end: 202503
  2. TYENNE [Suspect]
     Active Substance: TOCILIZUMAB-AAZG
     Dosage: DOSE 2 (REINTRODUCTION) - 162 MG/WEEK?FOA: SOLUTION FOR INJECTION IN PRE-FILLED PEN
     Route: 058
     Dates: start: 202506, end: 202506
  3. TYENNE [Suspect]
     Active Substance: TOCILIZUMAB-AAZG
  4. TYENNE [Suspect]
     Active Substance: TOCILIZUMAB-AAZG
  5. DULOXETINE [Concomitant]
     Active Substance: DULOXETINE
     Indication: Product used for unknown indication
  6. ACETAMINOPHEN\TRAMADOL [Concomitant]
     Active Substance: ACETAMINOPHEN\TRAMADOL
     Indication: Product used for unknown indication
  7. ZOLPIDEM [Concomitant]
     Active Substance: ZOLPIDEM TARTRATE
     Indication: Product used for unknown indication
  8. PREDNISOLONE [Concomitant]
     Active Substance: PREDNISOLONE
     Indication: Product used for unknown indication
     Dosage: 2TABLETS/DAY

REACTIONS (2)
  - Tongue geographic [Not Recovered/Not Resolved]
  - Burning mouth syndrome [Not Recovered/Not Resolved]

NARRATIVE: CASE EVENT DATE: 20250301
